FAERS Safety Report 7042305-4 (Version None)
Quarter: 2010Q4

REPORT INFORMATION
  Report Type: 
  Country: None (occurrence: None)
  Receive Date: 20101013
  Receipt Date: 20090821
  Transmission Date: 20110411
  Serious: No
  Sender: FDA-Public Use
  Company Number: US-ASTRAZENECA-2009SE09397

PATIENT
  Sex: Female
  Weight: 113.4 kg

DRUGS (1)
  1. SYMBICORT [Suspect]
     Dosage: 320 MCG
     Route: 055
     Dates: start: 20090801

REACTIONS (2)
  - CANDIDIASIS [None]
  - LIP SWELLING [None]
